FAERS Safety Report 25449424 (Version 3)
Quarter: 2025Q3

REPORT INFORMATION
  Report Type: Spontaneous
  Country: EU (occurrence: EU)
  Receive Date: 20250618
  Receipt Date: 20250715
  Transmission Date: 20251021
  Serious: No
  Sender: UCB
  Company Number: EU-UCBSA-2025034558

PATIENT
  Sex: Male

DRUGS (1)
  1. NEUPRO [Suspect]
     Active Substance: ROTIGOTINE
     Indication: Parkinson^s disease
     Dosage: 6 MILLIGRAM, ONCE DAILY (QD)
     Route: 062
     Dates: start: 2024

REACTIONS (3)
  - Product adhesion issue [Unknown]
  - Incorrect dose administered [Unknown]
  - Product physical issue [Unknown]
